FAERS Safety Report 25206361 (Version 1)
Quarter: 2025Q2

REPORT INFORMATION
  Report Type: Spontaneous
  Country: ES (occurrence: ES)
  Receive Date: 20250417
  Receipt Date: 20250417
  Transmission Date: 20250716
  Serious: Yes (Death)
  Sender: RECORDATI
  Company Number: ES-ORPHANEU-2025002687

PATIENT
  Age: 53 Year
  Sex: Male

DRUGS (2)
  1. OSILODROSTAT [Suspect]
     Active Substance: OSILODROSTAT
     Indication: Cushing^s syndrome
     Dosage: 1 MILLIGRAM, Q12H
     Route: 048
     Dates: start: 202408, end: 2024
  2. OSILODROSTAT [Suspect]
     Active Substance: OSILODROSTAT
     Dosage: 4 MILLIGRAM, Q12H
     Route: 048
     Dates: start: 2024, end: 202410

REACTIONS (3)
  - Infection [Fatal]
  - Treatment noncompliance [Recovered/Resolved]
  - Disease progression [Recovered/Resolved]

NARRATIVE: CASE EVENT DATE: 20240101
